FAERS Safety Report 7104494-2 (Version None)
Quarter: 2010Q4

REPORT INFORMATION
  Report Type: 
  Country: None (occurrence: None)
  Receive Date: 20101116
  Receipt Date: 20101108
  Transmission Date: 20110411
  Serious: No
  Sender: FDA-Public Use
  Company Number: US-BIOGENIDEC-2010BI039321

PATIENT
  Age: 47 Year
  Sex: Female

DRUGS (2)
  1. TYSABRI [Suspect]
     Indication: MULTIPLE SCLEROSIS
     Route: 042
     Dates: start: 20080131
  2. AVONEX [Concomitant]
     Dates: start: 19980101

REACTIONS (4)
  - GENERAL SYMPTOM [None]
  - HYPERHIDROSIS [None]
  - NASOPHARYNGITIS [None]
  - PYREXIA [None]
